FAERS Safety Report 5330012-5 (Version None)
Quarter: 2007Q2

REPORT INFORMATION
  Report Type: 
  Country: None (occurrence: None)
  Receive Date: 20070521
  Receipt Date: 20070508
  Transmission Date: 20071010
  Serious: Yes (Other)
  Sender: FDA-Public Use
  Company Number: B0471265A

PATIENT
  Age: 24 Year
  Sex: Male

DRUGS (11)
  1. LAMIVUDINE [Suspect]
     Indication: HIV INFECTION
     Route: 065
     Dates: start: 19970101
  2. CYCLOPHOSPHAMIDE [Suspect]
     Indication: B-CELL LYMPHOMA
     Route: 065
     Dates: start: 20040601
  3. DOXORUBICIN HCL [Suspect]
     Indication: B-CELL LYMPHOMA
     Route: 065
     Dates: start: 20040601
  4. VINCRISTINE [Suspect]
     Indication: B-CELL LYMPHOMA
     Route: 065
     Dates: start: 20040601
  5. PREDNISONE TAB [Suspect]
     Indication: B-CELL LYMPHOMA
     Route: 065
     Dates: start: 20040601
  6. ZIDOVUDINE [Concomitant]
     Indication: HIV INFECTION
     Route: 065
  7. DIDANOSINE [Concomitant]
     Indication: HIV INFECTION
     Route: 065
     Dates: start: 19950101
  8. LOPINAVIR + RITONAVIR [Concomitant]
     Indication: HIV INFECTION
     Route: 065
     Dates: start: 20030101
  9. EFAVIRENZ [Concomitant]
     Indication: HIV INFECTION
     Route: 065
     Dates: start: 20030101
  10. STEROIDS [Concomitant]
     Indication: B-CELL LYMPHOMA
     Route: 065
     Dates: start: 20040601
  11. ADEFOVIR DIPIVOXIL KIT [Concomitant]
     Indication: HIV INFECTION
     Route: 065

REACTIONS (4)
  - ALANINE AMINOTRANSFERASE INCREASED [None]
  - DRUG INEFFECTIVE [None]
  - HBV DNA INCREASED [None]
  - HEPATITIS B [None]
